FAERS Safety Report 7801605-8 (Version None)
Quarter: 2011Q4

REPORT INFORMATION
  Report Type: 
  Country: None (occurrence: None)
  Receive Date: 20111007
  Receipt Date: 20110929
  Transmission Date: 20120403
  Serious: Yes (Life-Threatening, Other)
  Sender: FDA-Public Use
  Company Number: GB-CELGENEUS-167-20785-11093715

PATIENT
  Sex: Male

DRUGS (4)
  1. CYCLOSPORINE [Suspect]
     Indication: MULTIPLE MYELOMA
     Route: 048
     Dates: start: 20110528, end: 20110914
  2. THALIDOMIDE [Suspect]
     Indication: MULTIPLE MYELOMA
     Route: 048
     Dates: start: 20110528
  3. DEXAMETHASONE [Suspect]
     Indication: MULTIPLE MYELOMA
     Route: 048
     Dates: start: 20110528, end: 20110914
  4. THALIDOMIDE [Suspect]
     Dosage: 50 MILLIGRAM
     Route: 048

REACTIONS (1)
  - CEREBRAL INFARCTION [None]
